FAERS Safety Report 6507942-1 (Version None)
Quarter: 2009Q4

REPORT INFORMATION
  Report Type: 
  Country: None (occurrence: None)
  Receive Date: 20091221
  Receipt Date: 20091214
  Transmission Date: 20100525
  Serious: Yes (Hospitalization)
  Sender: FDA-Public Use
  Company Number: B0615023A

PATIENT
  Sex: Female

DRUGS (16)
  1. DEROXAT [Suspect]
     Indication: DRUG USE FOR UNKNOWN INDICATION
     Route: 048
     Dates: end: 20090516
  2. MODOPAR [Suspect]
     Indication: DRUG USE FOR UNKNOWN INDICATION
     Route: 048
     Dates: end: 20090516
  3. TRIVASTAL [Suspect]
     Indication: DRUG USE FOR UNKNOWN INDICATION
     Route: 048
     Dates: end: 20090516
  4. DEPAKOTE [Suspect]
     Indication: DRUG USE FOR UNKNOWN INDICATION
     Route: 048
     Dates: end: 20090516
  5. ANAFRANIL [Suspect]
     Indication: DRUG USE FOR UNKNOWN INDICATION
     Route: 048
     Dates: end: 20090516
  6. OXYBUTYNINE [Suspect]
     Indication: DRUG USE FOR UNKNOWN INDICATION
     Route: 048
     Dates: end: 20090516
  7. IXPRIM [Suspect]
     Indication: DRUG USE FOR UNKNOWN INDICATION
     Route: 048
  8. KARDEGIC [Concomitant]
     Dosage: 75MG PER DAY
     Route: 048
  9. FOSAMAX [Concomitant]
     Route: 048
     Dates: end: 20090516
  10. NEXIUM [Concomitant]
     Dosage: 20MG PER DAY
     Route: 048
  11. SERETIDE [Concomitant]
     Indication: DRUG USE FOR UNKNOWN INDICATION
     Dosage: 1PUFF TWICE PER DAY
     Route: 055
  12. TRANXENE [Concomitant]
     Dosage: 5MG PER DAY
     Route: 048
  13. TRIATEC [Concomitant]
     Dosage: 1UNIT PER DAY
     Route: 048
     Dates: end: 20090516
  14. TRANSIPEG [Concomitant]
     Dosage: 1UNIT TWICE PER DAY
     Route: 048
  15. TARDYFERON [Concomitant]
     Route: 048
  16. CACIT VITAMINE D3 [Concomitant]
     Dosage: 1UNIT PER DAY
     Route: 048

REACTIONS (14)
  - AMIMIA [None]
  - BLADDER DISORDER [None]
  - COGWHEEL RIGIDITY [None]
  - CONFUSIONAL STATE [None]
  - CYSTITIS KLEBSIELLA [None]
  - DISABILITY [None]
  - DISTURBANCE IN ATTENTION [None]
  - EXTRAPYRAMIDAL DISORDER [None]
  - GAIT DISTURBANCE [None]
  - MOVEMENT DISORDER [None]
  - MUTISM [None]
  - PSYCHOMOTOR SKILLS IMPAIRED [None]
  - RENAL FAILURE [None]
  - URINARY RETENTION [None]
